FAERS Safety Report 4783940-3 (Version None)
Quarter: 2005Q3

REPORT INFORMATION
  Report Type: 
  Country: None (occurrence: None)
  Receive Date: 20050927
  Receipt Date: 20050728
  Transmission Date: 20060218
  Serious: No
  Sender: FDA-Public Use
  Company Number: USA0507104012

PATIENT
  Age: 35 Year
  Sex: Male
  Weight: 66 kg

DRUGS (2)
  1. STRATTERA [Suspect]
     Indication: ATTENTION DEFICIT/HYPERACTIVITY DISORDER
     Dosage: 60 MG DAY
  2. KLONOPIN [Concomitant]

REACTIONS (2)
  - ANXIETY [None]
  - VOMITING [None]
